FAERS Safety Report 9595531 (Version 1)
Quarter: 2013Q3

REPORT INFORMATION
  Report Type: Spontaneous
  Country: US (occurrence: None)
  Receive Date: 20130927
  Receipt Date: 20130927
  Transmission Date: 20140515
  Serious: Yes (Death)
  Sender: FDA-Public Use
  Company Number: CABO-13003000

PATIENT
  Age: 67 Year
  Sex: Female

DRUGS (13)
  1. COMETRIQ (CABOZANTINIB) CAPSULE [Suspect]
     Indication: BREAST CANCER FEMALE
     Route: 048
     Dates: start: 20130319, end: 20130404
  2. TUMS [Concomitant]
  3. MEGESTROL ACETATE [Concomitant]
  4. FENTANYL [Concomitant]
  5. COMPAZINE [Concomitant]
  6. LOMOTIL [Concomitant]
  7. LEVOTHYROXINE [Concomitant]
  8. LASIX [Concomitant]
  9. LORAZEPAM [Concomitant]
  10. METOPROLOL [Concomitant]
  11. HYDROMORPHONE [Concomitant]
  12. ASPIRIN [Concomitant]
  13. NITROGLYCERIN [Concomitant]

REACTIONS (1)
  - Cerebrovascular accident [None]
